FAERS Safety Report 6442926-3 (Version None)
Quarter: 2009Q4

REPORT INFORMATION
  Report Type: 
  Country: None (occurrence: None)
  Receive Date: 20091112
  Receipt Date: 20091028
  Transmission Date: 20100525
  Serious: Yes (Hospitalization, Other)
  Sender: FDA-Public Use
  Company Number: AUR-APL-2009-01112

PATIENT
  Age: 50 Year
  Sex: Female

DRUGS (7)
  1. ATENOLOL [Suspect]
     Dosage: ORAL
     Route: 048
  2. SIMVASTATIN [Suspect]
     Dosage: ORAL
     Route: 048
  3. SODIUM AUROTHIOMALATE   (MYOCRISIN) [Suspect]
     Dosage: 10MG - UIM
     Dates: start: 20080924
  4. RAMIPRIL [Suspect]
     Dosage: - UORAL
     Route: 048
  5. CODEINE PHOSPHATE [Concomitant]
  6. LANSOPRAZOLE [Concomitant]
  7. PREDNISOLONE [Concomitant]

REACTIONS (10)
  - ALLERGY TO METALS [None]
  - BODY TEMPERATURE INCREASED [None]
  - DIARRHOEA [None]
  - DRUG INTERACTION [None]
  - HEADACHE [None]
  - MUSCULOSKELETAL STIFFNESS [None]
  - RASH [None]
  - RENAL FAILURE [None]
  - SHOCK [None]
  - SYNCOPE [None]
